FAERS Safety Report 16197186 (Version 3)
Quarter: 2019Q4

REPORT INFORMATION
  Report Type: Spontaneous
  Country: US (occurrence: US)
  Receive Date: 20190415
  Receipt Date: 20191211
  Transmission Date: 20200122
  Serious: No
  Sender: FDA-Public Use
  Company Number: US-PFIZER INC-2019044321

PATIENT
  Age: 49 Year
  Sex: Female
  Weight: 65 kg

DRUGS (18)
  1. ADRIAMYCIN [Concomitant]
     Active Substance: DOXORUBICIN HYDROCHLORIDE
     Indication: CHEMOTHERAPY
     Dosage: UNK
  2. NEOSAR [Concomitant]
     Active Substance: CYCLOPHOSPHAMIDE
     Indication: CHEMOTHERAPY
     Dosage: UNK
  3. PREDNISONE. [Concomitant]
     Active Substance: PREDNISONE
     Dosage: 20 MG, UNK
  4. DOXIL [Concomitant]
     Active Substance: DOXORUBICIN HYDROCHLORIDE
     Indication: CHEMOTHERAPY
     Dosage: UNK
  5. METFORMIN HCL [Concomitant]
     Active Substance: METFORMIN HYDROCHLORIDE
     Dosage: 500 MG, UNK (EXTENDED RELEASE)
  6. TAXOL [Concomitant]
     Active Substance: PACLITAXEL
     Indication: CHEMOTHERAPY
     Dosage: UNK
  7. VITAMIN D2 [Concomitant]
     Active Substance: ERGOCALCIFEROL
     Dosage: UNK
     Dates: start: 20111116, end: 20150313
  8. VENLAFAXINE HCL [Concomitant]
     Active Substance: VENLAFAXINE HYDROCHLORIDE
     Dosage: 37.5 MG, UNK (EXTENDED RELEASE)
  9. LYRICA [Concomitant]
     Active Substance: PREGABALIN
     Dosage: 75 MG, UNK
  10. TAMOXIFEN [Concomitant]
     Active Substance: TAMOXIFEN
     Dosage: 20 MG, UNK
  11. SIMVASTATIN. [Concomitant]
     Active Substance: SIMVASTATIN
     Dosage: 10 MG/ 20 MG
  12. LORAZEPAM. [Concomitant]
     Active Substance: LORAZEPAM
     Dosage: UNK
     Dates: start: 20121128, end: 20160117
  13. LORAZEPAM. [Concomitant]
     Active Substance: LORAZEPAM
     Dosage: UNK
     Dates: start: 2013, end: 2014
  14. DOCETAXEL. [Suspect]
     Active Substance: DOCETAXEL
     Dosage: 100 MG, CYCLIC (EVERY THREE WEEKS, 03 CYCLES)
     Dates: start: 20130403, end: 20130509
  15. LORAZEPAM. [Concomitant]
     Active Substance: LORAZEPAM
     Dosage: UNK
     Dates: start: 20160218, end: 20180808
  16. LORAZEPAM. [Concomitant]
     Active Substance: LORAZEPAM
     Dosage: 0.5 MG, UNK
  17. DOCETAXEL. [Suspect]
     Active Substance: DOCETAXEL
     Indication: BREAST CANCER FEMALE
     Dosage: 170 MG, CYCLIC (EVERY THREE WEEKS, 03 CYCLES)
     Dates: end: 20130502
  18. LORAZEPAM. [Concomitant]
     Active Substance: LORAZEPAM
     Dosage: UNK
     Dates: start: 201308, end: 201308

REACTIONS (5)
  - Madarosis [Not Recovered/Not Resolved]
  - Hair disorder [Not Recovered/Not Resolved]
  - Hair texture abnormal [Not Recovered/Not Resolved]
  - Hair colour changes [Not Recovered/Not Resolved]
  - Alopecia [Not Recovered/Not Resolved]

NARRATIVE: CASE EVENT DATE: 20130314
